FAERS Safety Report 10205563 (Version 1)
Quarter: 2014Q2

REPORT INFORMATION
  Report Type: Spontaneous
  Country: DK (occurrence: FR)
  Receive Date: 20140529
  Receipt Date: 20140529
  Transmission Date: 20141212
  Serious: Yes (Death)
  Sender: FDA-Public Use
  Company Number: FR-FRI-1000067646

PATIENT
  Age: 87 Year
  Sex: Male

DRUGS (7)
  1. ESCITALOPRAM [Suspect]
     Route: 048
     Dates: start: 201402, end: 20140316
  2. PREVISCAN [Suspect]
     Indication: ARRHYTHMIA SUPRAVENTRICULAR
     Route: 048
     Dates: end: 20140316
  3. FUROSEMIDE [Concomitant]
  4. DIAMICRON [Concomitant]
  5. COVERSYL [Concomitant]
  6. LERCANIDIPINE [Concomitant]
  7. EUPRESSYL [Concomitant]

REACTIONS (3)
  - Shock haemorrhagic [Fatal]
  - International normalised ratio increased [Fatal]
  - Condition aggravated [Fatal]
